FAERS Safety Report 17663355 (Version 1)
Quarter: 2020Q2

REPORT INFORMATION
  Report Type: Spontaneous
  Country: US (occurrence: US)
  Receive Date: 20200413
  Receipt Date: 20200413
  Transmission Date: 20200713
  Serious: No
  Sender: FDA-Public Use
  Company Number: US-AMGEN-USASP2020058856

PATIENT
  Age: 59 Year
  Sex: Female

DRUGS (1)
  1. PROLIA [Suspect]
     Active Substance: DENOSUMAB
     Indication: OSTEOPOROSIS POSTMENOPAUSAL
     Dosage: 60 MILLIGRAM, Q6MO
     Route: 065

REACTIONS (7)
  - Pain [Not Recovered/Not Resolved]
  - Gastrooesophageal reflux disease [Unknown]
  - White blood cell count decreased [Unknown]
  - Injury [Not Recovered/Not Resolved]
  - Impaired healing [Unknown]
  - Oedema peripheral [Unknown]
  - Plantar fasciitis [Unknown]

NARRATIVE: CASE EVENT DATE: 2019
